FAERS Safety Report 7233347-4 (Version None)
Quarter: 2011Q1

REPORT INFORMATION
  Report Type: 
  Country: None (occurrence: None)
  Receive Date: 20110119
  Receipt Date: 20110106
  Transmission Date: 20110831
  Serious: Yes (Hospitalization, Other)
  Sender: FDA-Public Use
  Company Number: PHHY2011US01152

PATIENT
  Age: 45 Year
  Sex: Male

DRUGS (13)
  1. SIMVASTATIN [Interacting]
     Dosage: 80 MG, UNK
  2. SPIRONOLACTONE [Concomitant]
  3. SIMVASTATIN [Suspect]
     Dosage: 40 MG, UNK
  4. FUROSEMIDE [Concomitant]
  5. CLOPIDOGREL [Concomitant]
     Dosage: 300 MG, QD
  6. WARFARIN [Concomitant]
  7. CARVEDILOL [Concomitant]
  8. HYDRALAZINE [Concomitant]
  9. ASPIRIN [Concomitant]
     Dosage: 325 MG, QD
  10. ISOSORBIDE MONONITRATE [Concomitant]
  11. QUINAPRIL [Concomitant]
  12. CLOPIDOGREL [Concomitant]
     Dosage: 75 MG, QD
  13. HEPARIN [Concomitant]
     Route: 042

REACTIONS (14)
  - PULSELESS ELECTRICAL ACTIVITY [None]
  - MYOGLOBINURIA [None]
  - BLOOD CREATININE INCREASED [None]
  - DRUG INTERACTION [None]
  - CARDIAC ARREST [None]
  - VENTRICULAR FIBRILLATION [None]
  - RHABDOMYOLYSIS [None]
  - TROPONIN INCREASED [None]
  - LOSS OF CONSCIOUSNESS [None]
  - URINE COLOUR ABNORMAL [None]
  - BLOOD CREATINE PHOSPHOKINASE INCREASED [None]
  - COMA [None]
  - ELECTROCARDIOGRAM ST SEGMENT ELEVATION [None]
  - LEFT VENTRICULAR DYSFUNCTION [None]
